FAERS Safety Report 4287363-5 (Version None)
Quarter: 2004Q1

REPORT INFORMATION
  Report Type: 
  Country: None (occurrence: None)
  Receive Date: 20040205
  Receipt Date: 20040120
  Transmission Date: 20041129
  Serious: Yes (Death, Life-Threatening, Hospitalization)
  Sender: FDA-Public Use
  Company Number: B01200302436

PATIENT
  Age: 66 Year
  Sex: Male

DRUGS (2)
  1. CLOPIDOGREL BISULFATE [Suspect]
     Indication: ISCHAEMIC STROKE
     Dosage: 75 MG QD ORAL
     Route: 048
     Dates: start: 20020209, end: 20030810
  2. CLOPIDOGREL BISULFATE [Suspect]
     Indication: TRANSIENT ISCHAEMIC ATTACK
     Dosage: 75 MG QD ORAL
     Route: 048
     Dates: start: 20020209, end: 20030810

REACTIONS (15)
  - APHASIA [None]
  - ASPIRATION PLEURAL CAVITY ABNORMAL [None]
  - CEREBRAL HAEMORRHAGE [None]
  - FIBRIN INCREASED [None]
  - GENERAL PHYSICAL HEALTH DETERIORATION [None]
  - HAEMOPHILUS INFECTION [None]
  - HEMIPLEGIA [None]
  - INTERNATIONAL NORMALISED RATIO DECREASED [None]
  - LOSS OF CONSCIOUSNESS [None]
  - LUNG NEOPLASM MALIGNANT [None]
  - METASTASES TO ADRENALS [None]
  - METASTASES TO CENTRAL NERVOUS SYSTEM [None]
  - NEUTROPHIL COUNT INCREASED [None]
  - PSEUDOMONAS INFECTION [None]
  - WHITE BLOOD CELL COUNT INCREASED [None]
